FAERS Safety Report 7626460-0 (Version None)
Quarter: 2011Q3

REPORT INFORMATION
  Report Type: 
  Country: None (occurrence: None)
  Receive Date: 20110721
  Receipt Date: 20110719
  Transmission Date: 20111222
  Serious: Yes (Other)
  Sender: FDA-Public Use
  Company Number: AU-PFIZER INC-2011163766

PATIENT
  Age: 65 Year

DRUGS (1)
  1. VARENICLINE TARTRATE [Suspect]
     Dosage: 1 MG, UNK

REACTIONS (2)
  - DEEP VEIN THROMBOSIS [None]
  - DEPRESSED MOOD [None]
